FAERS Safety Report 5163231-1 (Version None)
Quarter: 2006Q4

REPORT INFORMATION
  Report Type: 
  Country: None (occurrence: None)
  Receive Date: 20061204
  Receipt Date: 20060302
  Transmission Date: 20070319
  Serious: Yes (Hospitalization)
  Sender: FDA-Public Use
  Company Number: US-ELI_LILLY_AND_COMPANY-US200603003552

PATIENT
  Age: 53 Year
  Sex: Male
  Weight: 111.11 kg

DRUGS (5)
  1. RISPERIDONE [Concomitant]
     Dates: start: 20000301
  2. BUPROPION HCL [Concomitant]
     Dates: start: 19981001, end: 20000201
  3. PAROXETINE HCL [Concomitant]
     Dates: start: 20010401, end: 20020101
  4. ATENOLOL [Concomitant]
     Dates: start: 19960301
  5. ZYPREXA [Suspect]
     Dosage: 5 MG, UNK
     Dates: start: 19981001, end: 20000501

REACTIONS (2)
  - CORONARY ARTERY BYPASS [None]
  - DIABETES MELLITUS [None]
